FAERS Safety Report 9540088 (Version 3)
Quarter: 2014Q1

REPORT INFORMATION
  Report Type: Report from Study
  Country: UG (occurrence: UG)
  Receive Date: 20130920
  Receipt Date: 20140124
  Transmission Date: 20141002
  Serious: Yes (Death, Hospitalization, Other)
  Sender: FDA-Public Use
  Company Number: UG-ABBVIE-11P-165-0709010-00

PATIENT
  Age: 38 Year
  Sex: Female

DRUGS (8)
  1. ALUVIA TABLETS [Suspect]
     Indication: HIV INFECTION
     Route: 048
     Dates: start: 20101110
  2. RALTEGRAVIR [Concomitant]
     Indication: HIV INFECTION
     Route: 048
     Dates: start: 20101110
  3. COTRIMOXAZOLE [Concomitant]
     Indication: PRODUCT USED FOR UNKNOWN INDICATION
     Dates: start: 20071029
  4. ACLOVIR [Concomitant]
     Indication: PRODUCT USED FOR UNKNOWN INDICATION
     Dates: start: 20101110, end: 20101116
  5. ZIDOVUDINE [Concomitant]
     Indication: HIV INFECTION
  6. TENOFOVIR [Concomitant]
     Indication: HIV INFECTION
     Dates: start: 20090106, end: 20101109
  7. LAMIVUDINE [Concomitant]
     Indication: HIV INFECTION
     Dates: start: 20071029, end: 20101109
  8. NEVIRAPINE [Concomitant]
     Indication: HIV INFECTION
     Dates: start: 20071029, end: 20101109

REACTIONS (27)
  - Tuberculosis [Fatal]
  - Hypertension [Not Recovered/Not Resolved]
  - Pain in extremity [Not Recovered/Not Resolved]
  - Pain [Not Recovered/Not Resolved]
  - General physical condition abnormal [Not Recovered/Not Resolved]
  - Skin warm [Not Recovered/Not Resolved]
  - Alopecia [Not Recovered/Not Resolved]
  - Pallor [Not Recovered/Not Resolved]
  - Mycobacterium tuberculosis complex test negative [Fatal]
  - Plasmodium falciparum infection [Not Recovered/Not Resolved]
  - Sepsis [Recovered/Resolved]
  - Sepsis [Not Recovered/Not Resolved]
  - Fatigue [Not Recovered/Not Resolved]
  - Malaise [Not Recovered/Not Resolved]
  - Lethargy [Not Recovered/Not Resolved]
  - Anaemia [Recovered/Resolved]
  - Blood bilirubin increased [Not Recovered/Not Resolved]
  - Pyrexia [Not Recovered/Not Resolved]
  - Asthenia [Not Recovered/Not Resolved]
  - Local swelling [Not Recovered/Not Resolved]
  - Palpitations [Not Recovered/Not Resolved]
  - Cachexia [Not Recovered/Not Resolved]
  - Jaundice [Not Recovered/Not Resolved]
  - Oedema peripheral [Not Recovered/Not Resolved]
  - Abdominal distension [Not Recovered/Not Resolved]
  - Hepatomegaly [Not Recovered/Not Resolved]
  - Dizziness [Not Recovered/Not Resolved]
